FAERS Safety Report 4553379-4 (Version None)
Quarter: 2005Q1

REPORT INFORMATION
  Report Type: 
  Country: None (occurrence: None)
  Receive Date: 20050112
  Receipt Date: 20041227
  Transmission Date: 20050727
  Serious: Yes (Death)
  Sender: FDA-Public Use
  Company Number: JP_041105260

PATIENT
  Sex: Male
  Weight: 68 kg

DRUGS (4)
  1. VANCOMYCIN [Suspect]
     Indication: WOUND INFECTION STAPHYLOCOCCAL
     Dosage: 500 MG/4 OTHER
     Dates: start: 20020101, end: 20020101
  2. BAKTAR [Concomitant]
  3. FLOMOX (CEFCAPENE PIVOXIL HYDROCHLORIDE) [Concomitant]
  4. UNASYN (SULTAMICILLIN TOSILATE) [Concomitant]

REACTIONS (4)
  - INFECTION [None]
  - LYMPHOCYTE STIMULATION TEST POSITIVE [None]
  - PANCYTOPENIA [None]
  - STEVENS-JOHNSON SYNDROME [None]
